FAERS Safety Report 13456436 (Version 2)
Quarter: 2017Q2

REPORT INFORMATION
  Report Type: Spontaneous
  Country: US (occurrence: US)
  Receive Date: 20170418
  Receipt Date: 20170424
  Transmission Date: 20170830
  Serious: No
  Sender: FDA-Public Use
  Company Number: US-GILEAD-2017-0267804

PATIENT
  Age: 29 Year
  Sex: Female
  Weight: 54.42 kg

DRUGS (10)
  1. OSCAL [Concomitant]
     Active Substance: CALCIUM CARBONATE
  2. VITAMIN D3 [Concomitant]
     Active Substance: CHOLECALCIFEROL
  3. ADVAIR HFA [Concomitant]
     Active Substance: FLUTICASONE PROPIONATE\SALMETEROL XINAFOATE
     Dosage: UNK
     Dates: start: 20170316
  4. ALBUTEROL                          /00139501/ [Concomitant]
     Active Substance: ALBUTEROL
  5. CREON [Concomitant]
     Active Substance: PANCRELIPASE AMYLASE\PANCRELIPASE LIPASE\PANCRELIPASE PROTEASE
     Dosage: UNK
     Dates: start: 20160315
  6. CAYSTON [Suspect]
     Active Substance: AZTREONAM
     Indication: CYSTIC FIBROSIS
     Dosage: 75 MG, TID
     Route: 055
     Dates: start: 20170401
  7. MAG OXIDE [Concomitant]
     Active Substance: MAGNESIUM OXIDE
     Dosage: UNK
     Dates: start: 20170131
  8. PULMOZYME [Concomitant]
     Active Substance: DORNASE ALFA
     Dosage: UNK
     Dates: start: 20170404
  9. CAYSTON [Suspect]
     Active Substance: AZTREONAM
     Indication: PSEUDOMONAS INFECTION
  10. PROZAC [Concomitant]
     Active Substance: FLUOXETINE HYDROCHLORIDE
     Dosage: UNK
     Dates: start: 20150929

REACTIONS (3)
  - Cough [Recovered/Resolved]
  - Vomiting [Recovered/Resolved]
  - Retching [Unknown]

NARRATIVE: CASE EVENT DATE: 20170401
